FAERS Safety Report 8275552-4 (Version None)
Quarter: 2012Q2

REPORT INFORMATION
  Report Type: 
  Country: None (occurrence: None)
  Receive Date: 20120412
  Receipt Date: 20120330
  Transmission Date: 20120825
  Serious: Yes (Other)
  Sender: FDA-Public Use
  Company Number: BE-AMGEN-BELSP2012021662

PATIENT
  Age: 74 Year

DRUGS (1)
  1. ENBREL [Suspect]
     Indication: PSORIASIS
     Dosage: 50 MG, UNK
     Route: 058
     Dates: start: 20120301

REACTIONS (3)
  - WOUND HAEMORRHAGE [None]
  - DRY SKIN [None]
  - SKIN EXFOLIATION [None]
